FAERS Safety Report 22658267 (Version 1)
Quarter: 2023Q2

REPORT INFORMATION
  Report Type: Spontaneous
  Country: US (occurrence: US)
  Receive Date: 20230630
  Receipt Date: 20230630
  Transmission Date: 20230722
  Serious: No
  Sender: FDA-Public Use
  Company Number: US-SANOFI-01671779

PATIENT
  Age: 70 Year
  Sex: Female

DRUGS (2)
  1. DUPIXENT [Suspect]
     Active Substance: DUPILUMAB
     Indication: Nasal polyps
     Dosage: 300 MG, QOW
  2. COSENTYX [Concomitant]
     Active Substance: SECUKINUMAB
     Dosage: UNK

REACTIONS (2)
  - Injection site pain [Unknown]
  - Accidental exposure to product [Unknown]

NARRATIVE: CASE EVENT DATE: 20230627
